FAERS Safety Report 5138984-9 (Version None)
Quarter: 2006Q4

REPORT INFORMATION
  Report Type: 
  Country: None (occurrence: None)
  Receive Date: 20061030
  Receipt Date: 20060530
  Transmission Date: 20070319
  Serious: No
  Sender: FDA-Public Use
  Company Number: US-GLAXOSMITHKLINE-A0607272A

PATIENT
  Age: 57 Year
  Sex: Male
  Weight: 81.4 kg

DRUGS (6)
  1. ADVAIR HFA [Suspect]
     Indication: CHRONIC OBSTRUCTIVE PULMONARY DISEASE
     Dosage: 1PUFF TWICE PER DAY
     Route: 055
     Dates: start: 20060501
  2. COMBIVENT [Concomitant]
     Dosage: 2PUFF PER DAY
  3. AMBIEN [Concomitant]
  4. LEVAQUIN [Concomitant]
  5. XANAX [Concomitant]
  6. CLARINEX [Concomitant]

REACTIONS (2)
  - DRUG INEFFECTIVE [None]
  - PHARMACEUTICAL PRODUCT COMPLAINT [None]
